FAERS Safety Report 13087227 (Version 1)
Quarter: 2017Q1

REPORT INFORMATION
  Report Type: Spontaneous
  Country: GB (occurrence: GB)
  Receive Date: 20170105
  Receipt Date: 20170105
  Transmission Date: 20170428
  Serious: Yes (Other)
  Sender: FDA-Public Use
  Company Number: GB-ACCORD-047179

PATIENT
  Age: 88 Year
  Sex: Female

DRUGS (10)
  1. SENNA ALEXANDRINA [Concomitant]
     Active Substance: SENNA LEAF
     Dates: start: 20161201
  2. AMLODIPINE [Concomitant]
     Active Substance: AMLODIPINE BESYLATE
     Dates: start: 20161201
  3. DOCUSATE [Concomitant]
     Active Substance: DOCUSATE
     Dates: start: 20161201
  4. HYPROMELLOSE/HYPROMELLOSE PHTHALATE [Concomitant]
     Dates: start: 20161201
  5. LEVOTHYROXINE. [Concomitant]
     Active Substance: LEVOTHYROXINE
     Dates: start: 20161201
  6. LEVETIRACETAM. [Suspect]
     Active Substance: LEVETIRACETAM
     Indication: PRODUCT USED FOR UNKNOWN INDICATION
     Dates: start: 20161201
  7. PARACETAMOL [Concomitant]
     Active Substance: ACETAMINOPHEN
     Dates: start: 20161201
  8. FOLIC ACID. [Concomitant]
     Active Substance: FOLIC ACID
     Dates: start: 20161201
  9. LAMOTRIGINE. [Concomitant]
     Active Substance: LAMOTRIGINE
     Dates: start: 20161201
  10. ADCAL [Concomitant]
     Active Substance: CALCIUM CARBONATE
     Dates: start: 20161201

REACTIONS (1)
  - Hypersensitivity [Unknown]

NARRATIVE: CASE EVENT DATE: 20161220
